FAERS Safety Report 7352188-0 (Version None)
Quarter: 2011Q1

REPORT INFORMATION
  Report Type: 
  Country: None (occurrence: None)
  Receive Date: 20110315
  Receipt Date: 20100914
  Transmission Date: 20110831
  Serious: Yes (Other)
  Sender: FDA-Public Use
  Company Number: US-BAYER-201015450NA

PATIENT
  Sex: Female
  Weight: 90.703 kg

DRUGS (10)
  1. SINGULAIR [Concomitant]
     Indication: ASTHMA
     Dosage: UNK
     Dates: start: 20020101
  2. ADVAIR DISKUS 100/50 [Concomitant]
     Indication: ASTHMA
     Dosage: 2 PUFF(S), HS
     Dates: start: 20020101
  3. CELEXA [Concomitant]
     Dosage: 40 MG, OM
  4. YAZ [Suspect]
     Dosage: UNK UNK, UNK
     Route: 048
     Dates: start: 20070801, end: 20091101
  5. CLARITIN [Concomitant]
     Indication: MULTIPLE ALLERGIES
     Dosage: 10 MG, UNK
     Route: 048
  6. YASMIN [Suspect]
     Route: 048
     Dates: start: 20070801
  7. SYNTHROID [Concomitant]
     Indication: HYPOTHYROIDISM
     Dosage: 012 MG, UNK
     Route: 048
     Dates: start: 19910101
  8. COMBIVENT [Concomitant]
     Indication: ASTHMA
     Dosage: UNK
     Dates: start: 20020101
  9. OCELLA [Suspect]
     Dosage: UNK UNK, QD
     Route: 048
     Dates: start: 20070801, end: 20091101
  10. EFFEXOR [Concomitant]
     Indication: ANXIETY
     Dosage: UNK
     Route: 048
     Dates: start: 20020101

REACTIONS (8)
  - CHOLECYSTITIS [None]
  - NAUSEA [None]
  - DIARRHOEA [None]
  - BODY TEMPERATURE INCREASED [None]
  - ABDOMINAL PAIN UPPER [None]
  - VOMITING [None]
  - BILIARY DYSKINESIA [None]
  - CHOLELITHIASIS [None]
